FAERS Safety Report 20299098 (Version 2)
Quarter: 2022Q1

REPORT INFORMATION
  Report Type: Spontaneous
  Country: US (occurrence: US)
  Receive Date: 20220105
  Receipt Date: 20220202
  Transmission Date: 20220423
  Serious: Yes (Other)
  Sender: FDA-Public Use
  Company Number: US-PFIZER INC-202101853405

PATIENT
  Age: 71 Year
  Sex: Female
  Weight: 50.794 kg

DRUGS (6)
  1. AZITHROMYCIN [Suspect]
     Active Substance: AZITHROMYCIN
     Indication: Urinary tract infection
     Dosage: 250 MG, 2X/DAY
     Dates: start: 20160729, end: 20160731
  2. MONTELUKAST [Suspect]
     Active Substance: MONTELUKAST SODIUM
     Indication: Hypersensitivity
     Dosage: 10 MG, DAILY
     Dates: start: 20170329, end: 20170815
  3. PREDNISONE [Suspect]
     Active Substance: PREDNISONE
     Indication: Bronchospasm
     Dosage: UNK
     Dates: start: 20120511, end: 20120515
  4. NITROFURANTOIN MONOHYDRATE [Suspect]
     Active Substance: NITROFURANTOIN MONOHYDRATE
     Indication: Urinary tract infection
     Dosage: 100 MG, 2X/DAY
     Dates: start: 20200917, end: 20200920
  5. TAMIFLU [Suspect]
     Active Substance: OSELTAMIVIR PHOSPHATE
     Indication: Influenza
     Dosage: UNK
  6. IPRATROPIUM BROMIDE [Suspect]
     Active Substance: IPRATROPIUM BROMIDE
     Indication: Sinus congestion
     Dosage: UNK
     Route: 045
     Dates: start: 20191216, end: 20191217

REACTIONS (2)
  - Arrhythmia [Recovered/Resolved]
  - Off label use [Unknown]

NARRATIVE: CASE EVENT DATE: 20160729
